FAERS Safety Report 9627119 (Version 1)
Quarter: 2013Q4

REPORT INFORMATION
  Report Type: Spontaneous
  Country: GB (occurrence: GB)
  Receive Date: 20131016
  Receipt Date: 20131016
  Transmission Date: 20140711
  Serious: Yes (Other)
  Sender: FDA-Public Use
  Company Number: GB-LUNDBECK-DKLU1094344

PATIENT
  Age: 57 Year
  Sex: Female

DRUGS (5)
  1. ONFI [Suspect]
     Indication: EPILEPSY
  2. TEGRETOL RETARD [Suspect]
     Indication: EPILEPSY
  3. TEGRETOL RETARD [Suspect]
  4. TEGRETOL [Suspect]
     Indication: EPILEPSY
  5. LECITHIN [Concomitant]
     Indication: PRODUCT USED FOR UNKNOWN INDICATION

REACTIONS (15)
  - Urinary incontinence [Unknown]
  - Visual impairment [Unknown]
  - Freezing phenomenon [Unknown]
  - Blindness [Unknown]
  - Bladder disorder [Unknown]
  - Hypertonic bladder [Unknown]
  - Gallbladder disorder [Unknown]
  - Hypercholesterolaemia [Unknown]
  - Hypertension [Unknown]
  - Loss of consciousness [Unknown]
  - Gait disturbance [Unknown]
  - Weight increased [Unknown]
  - Diplopia [Unknown]
  - Tremor [Unknown]
  - Epilepsy [Unknown]
